FAERS Safety Report 14259144 (Version 1)
Quarter: 2017Q4

REPORT INFORMATION
  Report Type: Spontaneous
  Country: TR (occurrence: TR)
  Receive Date: 20171207
  Receipt Date: 20171207
  Transmission Date: 20180321
  Serious: Yes (Disabling, Other)
  Sender: FDA-Public Use
  Company Number: TR-ASTRAZENECA-2017SF22974

PATIENT
  Age: 11472 Day
  Sex: Male
  Weight: 115 kg

DRUGS (2)
  1. FORZIGA [Suspect]
     Active Substance: DAPAGLIFLOZIN
     Route: 048
  2. FORZIGA [Suspect]
     Active Substance: DAPAGLIFLOZIN
     Route: 048

REACTIONS (2)
  - Therapy cessation [Unknown]
  - Soft tissue injury [Recovered/Resolved]

NARRATIVE: CASE EVENT DATE: 20170530
